FAERS Safety Report 9821479 (Version 3)
Quarter: 2015Q3

REPORT INFORMATION
  Report Type: Spontaneous
  Country: US (occurrence: US)
  Receive Date: 20140116
  Receipt Date: 20150807
  Transmission Date: 20151125
  Serious: Yes (Hospitalization)
  Sender: FDA-Public Use
  Company Number: US-GILEAD-2011-0035478

PATIENT
  Age: 83 Year
  Sex: Female

DRUGS (17)
  1. LETAIRIS [Suspect]
     Active Substance: AMBRISENTAN
     Indication: PULMONARY HYPERTENSION
     Route: 048
     Dates: start: 20101230
  2. NEURONTIN [Concomitant]
     Active Substance: GABAPENTIN
     Dates: start: 20101222
  3. LEXAPRO [Concomitant]
     Active Substance: ESCITALOPRAM OXALATE
     Dates: start: 20101108
  4. BUMETANIDE. [Concomitant]
     Active Substance: BUMETANIDE
     Dates: start: 20101105, end: 20110118
  5. PLAVIX [Concomitant]
     Active Substance: CLOPIDOGREL BISULFATE
     Dates: start: 20101108
  6. CRESTOR [Concomitant]
     Active Substance: ROSUVASTATIN CALCIUM
     Dates: start: 20101025, end: 20110118
  7. ALBUTEROL. [Concomitant]
     Active Substance: ALBUTEROL
     Dates: start: 20100913
  8. LETAIRIS [Suspect]
     Active Substance: AMBRISENTAN
     Indication: RESPIRATORY FAILURE
  9. KCL [Concomitant]
     Active Substance: POTASSIUM CHLORIDE
     Dates: start: 20100719
  10. CARVEDILOL. [Concomitant]
     Active Substance: CARVEDILOL
     Dates: start: 20101222
  11. MIDODRINE [Concomitant]
     Active Substance: MIDODRINE
     Dates: start: 20101207, end: 20110118
  12. METFORMIN [Concomitant]
     Active Substance: METFORMIN HYDROCHLORIDE
     Dates: start: 20101108
  13. PROTONIX [Concomitant]
     Active Substance: PANTOPRAZOLE SODIUM
     Dates: start: 20101222
  14. LETAIRIS [Suspect]
     Active Substance: AMBRISENTAN
     Indication: LUNG DISORDER
  15. DIGOXIN. [Concomitant]
     Active Substance: DIGOXIN
     Dates: start: 20101222
  16. IPRATROPIUM [Concomitant]
     Active Substance: IPRATROPIUM
     Dates: start: 20101222
  17. LUNESTA [Concomitant]
     Active Substance: ESZOPICLONE
     Dates: start: 20100913

REACTIONS (1)
  - Dyspnoea [Unknown]

NARRATIVE: CASE EVENT DATE: 20110118
